FAERS Safety Report 18389727 (Version 1)
Quarter: 2020Q4

REPORT INFORMATION
  Report Type: Spontaneous
  Country: RU (occurrence: RU)
  Receive Date: 20201016
  Receipt Date: 20201016
  Transmission Date: 20210114
  Serious: Yes (Hospitalization)
  Sender: FDA-Public Use
  Company Number: RU-009507513-2010RUS002830

PATIENT
  Age: 62 Year
  Sex: Female
  Weight: 94 kg

DRUGS (1)
  1. JANUMET [Suspect]
     Active Substance: METFORMIN HYDROCHLORIDE\SITAGLIPTIN PHOSPHATE
     Indication: TYPE 2 DIABETES MELLITUS
     Dosage: STRENGTH: 50/1000 (UNIT NOT PROVIDED) 1050 MILLIGRAM (MG), 2 TIMES A DAY (BID)
     Route: 049
     Dates: start: 20200311, end: 20200317

REACTIONS (2)
  - Pruritus [Recovered/Resolved]
  - Erythema [Recovered/Resolved]

NARRATIVE: CASE EVENT DATE: 20200311
